FAERS Safety Report 11855390 (Version 1)
Quarter: 2015Q4

REPORT INFORMATION
  Report Type: Spontaneous
  Country: US (occurrence: US)
  Receive Date: 20151221
  Receipt Date: 20151221
  Transmission Date: 20160305
  Serious: Yes (Other)
  Sender: FDA-Public Use
  Company Number: US-MYLANLABS-2015M1045721

PATIENT

DRUGS (2)
  1. NEOMYCIN AND POLYMYXIN B SULFATES AND BACITRACIN ZINC [Concomitant]
     Active Substance: BACITRACIN ZINC\NEOMYCIN SULFATE\POLYMYXIN B SULFATE
     Indication: KERATITIS
     Route: 047
  2. PREDNISOLONE. [Suspect]
     Active Substance: PREDNISOLONE
     Indication: KERATITIS
     Dosage: 1%
     Route: 047

REACTIONS (2)
  - Corneal scar [Recovering/Resolving]
  - Glaucoma [Recovered/Resolved]
